FAERS Safety Report 4393867-7 (Version None)
Quarter: 2004Q3

REPORT INFORMATION
  Report Type: 
  Country: None (occurrence: None)
  Receive Date: 20040702
  Receipt Date: 20040622
  Transmission Date: 20050211
  Serious: Yes (Congenital Anomaly)
  Sender: FDA-Public Use
  Company Number: 04P-056-0264698

PATIENT

DRUGS (1)
  1. KALETRA SOFT GELATIN CAPULES (LOPINAVIR/RITONAVIR)  (LOPINAVIR/RITONAV [Suspect]

REACTIONS (4)
  - CONGENITAL ANOMALY [None]
  - DRUG EXPOSURE DURING PREGNANCY [None]
  - GLUCOSE-6-PHOSPHATE DEHYDROGENASE DEFICIENCY [None]
  - PREMATURE BABY [None]
